FAERS Safety Report 7813842-7 (Version None)
Quarter: 2011Q4

REPORT INFORMATION
  Report Type: 
  Country: None (occurrence: None)
  Receive Date: 20111011
  Receipt Date: 20111003
  Transmission Date: 20120403
  Serious: Yes (Other)
  Sender: FDA-Public Use
  Company Number: 2011SP046729

PATIENT
  Age: 28 Year
  Sex: Female
  Weight: 135.6255 kg

DRUGS (1)
  1. SAPHRIS [Suspect]
     Indication: SCHIZOPHRENIA
     Dosage: 5 MG;QD
     Dates: start: 20110923

REACTIONS (1)
  - GENERALISED OEDEMA [None]
